FAERS Safety Report 19048077 (Version 1)
Quarter: 2021Q1

REPORT INFORMATION
  Report Type: Spontaneous
  Country: NL (occurrence: NL)
  Receive Date: 20210323
  Receipt Date: 20210323
  Transmission Date: 20210420
  Serious: Yes (Other)
  Sender: FDA-Public Use
  Company Number: NL-MYLANLABS-2021M1016495

PATIENT
  Sex: Male
  Weight: 105 kg

DRUGS (1)
  1. ACETYLCYSTEINE. [Suspect]
     Active Substance: ACETYLCYSTEINE
     Indication: PRODUCT USED FOR UNKNOWN INDICATION
     Dosage: 150 MG / KG IN 1 HOUR (16000 MG), THEN EVERY 4 HOURS 75 MG / KG
     Dates: start: 20210116

REACTIONS (2)
  - Rash [Recovered/Resolved]
  - Poisoning [Unknown]
